FAERS Safety Report 11224602 (Version 1)
Quarter: 2015Q2

REPORT INFORMATION
  Report Type: Spontaneous
  Country: US (occurrence: US)
  Receive Date: 20150629
  Receipt Date: 20150629
  Transmission Date: 20150821
  Serious: No
  Sender: FDA-Public Use
  Company Number: US-BAYER-2015-363217

PATIENT
  Age: 28 Year
  Sex: Male
  Weight: 86 kg

DRUGS (3)
  1. ALEVE [Suspect]
     Active Substance: NAPROXEN SODIUM
     Indication: PAIN
  2. ALEVE [Suspect]
     Active Substance: NAPROXEN SODIUM
     Indication: OROPHARYNGEAL PAIN
     Dosage: 2 DF, BID
     Route: 048
     Dates: start: 20150619, end: 20150619
  3. ALEVE [Suspect]
     Active Substance: NAPROXEN SODIUM
     Indication: PYREXIA

REACTIONS (1)
  - Extra dose administered [None]

NARRATIVE: CASE EVENT DATE: 20150619
